FAERS Safety Report 5091926-7 (Version None)
Quarter: 2006Q3

REPORT INFORMATION
  Report Type: 
  Country: None (occurrence: None)
  Receive Date: 20060829
  Receipt Date: 20060817
  Transmission Date: 20061208
  Serious: Yes (Other)
  Sender: FDA-Public Use
  Company Number: GB-BRISTOL-MYERS SQUIBB COMPANY-13479522

PATIENT
  Age: 8 Year
  Sex: Female

DRUGS (1)
  1. KENALOG [Suspect]
     Indication: JUVENILE ARTHRITIS
     Route: 058
     Dates: start: 20051019, end: 20051019

REACTIONS (2)
  - GENERALISED OEDEMA [None]
  - SKIN STRIAE [None]
